FAERS Safety Report 6085253-9 (Version None)
Quarter: 2009Q1

REPORT INFORMATION
  Report Type: 
  Country: None (occurrence: None)
  Receive Date: 20090220
  Receipt Date: 20090209
  Transmission Date: 20090719
  Serious: Yes (Other)
  Sender: FDA-Public Use
  Company Number: US-NOVOPROD-256177

PATIENT
  Sex: Female
  Weight: 82.086 kg

DRUGS (11)
  1. ACTIVELLA [Suspect]
     Indication: MENOPAUSAL SYMPTOMS
     Dosage: UNK, UNK
     Dates: start: 20010622, end: 20030322
  2. PREMARIN [Suspect]
     Indication: MENOPAUSAL SYMPTOMS
     Dosage: .0625 MG.
     Route: 048
     Dates: start: 19950309, end: 19960311
  3. PREMARIN [Suspect]
     Dosage: .3 MG, UNK
     Dates: start: 19960311, end: 19980206
  4. ESTRATEST H.S. [Suspect]
     Indication: MENOPAUSAL SYMPTOMS
     Dosage: 0.625 MG/ 1.25 MG
     Route: 048
     Dates: start: 19980309, end: 20010331
  5. MEDROXYPROGESTERONE ACETATE [Suspect]
     Indication: MENOPAUSAL SYMPTOMS
     Dosage: 2.5 MG, UNK
     Dates: start: 19970818, end: 20010211
  6. PROVERA [Concomitant]
     Indication: MENOPAUSE
     Dosage: 2.5 MG, UNK
     Dates: start: 19950901
  7. SYNTHROID [Concomitant]
     Indication: THYROID DISORDER
     Dosage: .075 MG, QD
     Route: 048
     Dates: start: 20000101
  8. EFFEXOR XR [Concomitant]
     Indication: HOT FLUSH
     Dosage: UNKNOWN
     Route: 048
     Dates: start: 20030401
  9. COUMADIN [Concomitant]
     Indication: THROMBOSIS
     Dosage: UNKNOWN
     Route: 048
     Dates: start: 20030101, end: 20080101
  10. ZOFRAN [Concomitant]
     Indication: DRUG USE FOR UNKNOWN INDICATION
     Dates: start: 20030401
  11. LISINOPRIL [Concomitant]
     Indication: DRUG USE FOR UNKNOWN INDICATION
     Dosage: 20 MG, QD
     Route: 048
     Dates: start: 20030301

REACTIONS (1)
  - BREAST CANCER [None]
